FAERS Safety Report 4737003-3 (Version None)
Quarter: 2005Q3

REPORT INFORMATION
  Report Type: 
  Country: None (occurrence: None)
  Receive Date: 20050802
  Receipt Date: 20050722
  Transmission Date: 20060218
  Serious: Yes (Hospitalization, Other)
  Sender: FDA-Public Use
  Company Number: KII-2005-0017715

PATIENT
  Age: 61 Year
  Sex: Female

DRUGS (1)
  1. MORPHINE SULFATE [Suspect]
     Indication: PAIN
     Dosage: ORAL
     Route: 048

REACTIONS (8)
  - COMA [None]
  - DRUG ABUSER [None]
  - OVERDOSE [None]
  - OXYGEN SATURATION DECREASED [None]
  - RESPIRATORY RATE DECREASED [None]
  - SEDATION [None]
  - SELF-MEDICATION [None]
  - SOMNOLENCE [None]
